FAERS Safety Report 13829833 (Version 2)
Quarter: 2017Q3

REPORT INFORMATION
  Report Type: Report from Study
  Country: DE (occurrence: DE)
  Receive Date: 20170803
  Receipt Date: 20170804
  Transmission Date: 20171127
  Serious: Yes (Other)
  Sender: FDA-Public Use
  Company Number: PHHY2017DE020421

PATIENT
  Age: 36 Year
  Sex: Female
  Weight: 63 kg

DRUGS (8)
  1. IBUPROFEN. [Concomitant]
     Active Substance: IBUPROFEN
     Indication: PAIN
     Dosage: 400 MG, QD
     Route: 048
     Dates: start: 20161015, end: 20161017
  2. SUMATRIPTAN. [Concomitant]
     Active Substance: SUMATRIPTAN
     Indication: MIGRAINE
     Dosage: 100 MG, PRN
     Route: 048
     Dates: start: 201505, end: 20161205
  3. FOLIC ACID. [Concomitant]
     Active Substance: FOLIC ACID
     Indication: PROPHYLAXIS
     Dosage: 800 UG, QD
     Route: 048
     Dates: start: 20161227, end: 20170302
  4. NEUREXAN [Concomitant]
     Active Substance: HOMEOPATHICS
     Indication: NERVOUS SYSTEM DISORDER
     Dosage: 0.6 G, PRN
     Route: 048
     Dates: start: 201703
  5. FOLIC ACID. [Concomitant]
     Active Substance: FOLIC ACID
     Dosage: 400 UG, QD
     Route: 048
     Dates: start: 20170303
  6. XYLOMETAZOLINE [Concomitant]
     Active Substance: XYLOMETAZOLINE
     Indication: VIRAL UPPER RESPIRATORY TRACT INFECTION
     Dosage: 0.5 MG, PRN
     Route: 045
     Dates: start: 201612, end: 201612
  7. GILENYA [Suspect]
     Active Substance: FINGOLIMOD HYDROCHLORIDE
     Indication: RELAPSING-REMITTING MULTIPLE SCLEROSIS
     Dosage: 0.5 MG, QD
     Route: 048
     Dates: start: 201604, end: 20161205
  8. NARATRIPTAN [Concomitant]
     Active Substance: NARATRIPTAN HYDROCHLORIDE
     Indication: MIGRAINE
     Dosage: 2.5 MG, PRN
     Route: 048
     Dates: start: 201612, end: 20170131

REACTIONS (2)
  - Maternal exposure during pregnancy [Unknown]
  - Respiratory tract infection [Recovered/Resolved]

NARRATIVE: CASE EVENT DATE: 20170325
